FAERS Safety Report 17030677 (Version 1)
Quarter: 2019Q4

REPORT INFORMATION
  Report Type: Spontaneous
  Country: US (occurrence: US)
  Receive Date: 20191011
  Receipt Date: 20191011
  Transmission Date: 20200122
  Serious: Yes (Hospitalization)
  Sender: FDA-Public Use
  Company Number: None

PATIENT
  Age: 59 Year
  Sex: Female

DRUGS (21)
  1. PRADAXA [Concomitant]
     Active Substance: DABIGATRAN ETEXILATE MESYLATE
  2. FLONASE [Concomitant]
     Active Substance: FLUTICASONE PROPIONATE
  3. ELIQUIS [Concomitant]
     Active Substance: APIXABAN
  4. VITAMIN D3 [Concomitant]
     Active Substance: CHOLECALCIFEROL
  5. PERCOCET [Concomitant]
     Active Substance: ACETAMINOPHEN\OXYCODONE HYDROCHLORIDE
  6. MIDODRINE [Concomitant]
     Active Substance: MIDODRINE
  7. FLUTICASONE. [Concomitant]
     Active Substance: FLUTICASONE
  8. LEVOTHYROXINE. [Concomitant]
     Active Substance: LEVOTHYROXINE
  9. OPSUMIT [Suspect]
     Active Substance: MACITENTAN
     Indication: PULMONARY ARTERIAL HYPERTENSION
     Route: 048
     Dates: start: 20190212
  10. TADALAFIL. [Concomitant]
     Active Substance: TADALAFIL
  11. CALCITRIOL. [Concomitant]
     Active Substance: CALCITRIOL
  12. MIDODRINE [Concomitant]
     Active Substance: MIDODRINE
  13. VELETRI [Concomitant]
     Active Substance: EPOPROSTENOL
  14. KLOR-CON [Concomitant]
     Active Substance: POTASSIUM CHLORIDE
  15. PANTOPRAZOLE [Concomitant]
     Active Substance: PANTOPRAZOLE
  16. DIGOXIN. [Concomitant]
     Active Substance: DIGOXIN
  17. PEDIA-LAX [Concomitant]
     Active Substance: SODIUM PHOSPHATE, DIBASIC, HEPTAHYDRATE\SODIUM PHOSPHATE, MONOBASIC
  18. TORSEMIDE. [Concomitant]
     Active Substance: TORSEMIDE
  19. AMIODARONE [Concomitant]
     Active Substance: AMIODARONE
  20. CALCIUM CARBONATE. [Concomitant]
     Active Substance: CALCIUM CARBONATE
  21. FERROUS SULFATE. [Concomitant]
     Active Substance: FERROUS SULFATE

REACTIONS (3)
  - Syncope [None]
  - Atrial fibrillation [None]
  - Urinary tract infection [None]

NARRATIVE: CASE EVENT DATE: 20190912
